FAERS Safety Report 20244323 (Version 1)
Quarter: 2021Q4

REPORT INFORMATION
  Report Type: Spontaneous
  Country: DE (occurrence: DE)
  Receive Date: 20211229
  Receipt Date: 20211229
  Transmission Date: 20220303
  Serious: Yes (Hospitalization, Other)
  Sender: FDA-Public Use
  Company Number: DE-CELLTRION INC.-2021DE017674

PATIENT

DRUGS (27)
  1. TRASTUZUMAB [Suspect]
     Active Substance: TRASTUZUMAB
     Indication: HER2 positive breast cancer
     Dosage: CYCLE 1: LOADING DOSE 8 MG/KG BODY WEIGHT
  2. TRASTUZUMAB [Suspect]
     Active Substance: TRASTUZUMAB
     Dosage: CYCLE 2: 6 MG/KG BODY WEIGHT EVERY 3 WEEKS
  3. TRASTUZUMAB [Suspect]
     Active Substance: TRASTUZUMAB
     Dosage: CYCLE 3
  4. TRASTUZUMAB [Suspect]
     Active Substance: TRASTUZUMAB
     Dosage: CYCLE 4
  5. TRASTUZUMAB [Suspect]
     Active Substance: TRASTUZUMAB
     Dosage: CYCLE 5
  6. TRASTUZUMAB [Suspect]
     Active Substance: TRASTUZUMAB
     Dosage: CYCLE 6
  7. TRASTUZUMAB [Suspect]
     Active Substance: TRASTUZUMAB
     Dosage: CYCLE 7
  8. PACLITAXEL [Suspect]
     Active Substance: PACLITAXEL
     Indication: HER2 positive breast cancer
     Dosage: CYCLE (80MG/M2 WEEKLY)
  9. PACLITAXEL [Suspect]
     Active Substance: PACLITAXEL
     Dosage: CYCLE 2 (80MG/M2 WEEKLY)
  10. PACLITAXEL [Suspect]
     Active Substance: PACLITAXEL
     Dosage: CYCLE 3 (80MG/M2 WEEKLY)
  11. PACLITAXEL [Suspect]
     Active Substance: PACLITAXEL
     Dosage: CYCLE 4 (80MG/M2 WEEKLY)
  12. PACLITAXEL [Suspect]
     Active Substance: PACLITAXEL
     Dosage: CYCLE 5 (80MG/M2 WEEKLY)
  13. PACLITAXEL [Suspect]
     Active Substance: PACLITAXEL
     Dosage: CYCLE 6 (80MG/M2 WEEKLY)
  14. PACLITAXEL [Suspect]
     Active Substance: PACLITAXEL
     Dosage: CYCLE 7 (80MG/M2 WEEKLY)
  15. PACLITAXEL [Suspect]
     Active Substance: PACLITAXEL
     Dosage: CYCLE 8 (80MG/M2 WEEKLY)
  16. PACLITAXEL [Suspect]
     Active Substance: PACLITAXEL
     Dosage: CYCLE 9 (80MG/M2 WEEKLY)
  17. PACLITAXEL [Suspect]
     Active Substance: PACLITAXEL
     Dosage: CYCLE 10 (80MG/M2 WEEKLY)
  18. PACLITAXEL [Suspect]
     Active Substance: PACLITAXEL
     Dosage: CYCLE 11 (80MG/M2 WEEKLY)
  19. PACLITAXEL [Suspect]
     Active Substance: PACLITAXEL
     Dosage: CYCLE 12 (80MG/M2 WEEKLY)
  20. PERTUZUMAB [Suspect]
     Active Substance: PERTUZUMAB
     Indication: HER2 positive breast cancer
     Dosage: CYCLE 1: 840 MG LOADING DOSE
  21. PERTUZUMAB [Suspect]
     Active Substance: PERTUZUMAB
     Dosage: CYCLE 2: 420 MG EVERY 3 WEEKS
  22. PERTUZUMAB [Suspect]
     Active Substance: PERTUZUMAB
     Dosage: CYCLIC 3
  23. PERTUZUMAB [Suspect]
     Active Substance: PERTUZUMAB
     Dosage: CYCLIC 4
  24. PERTUZUMAB [Suspect]
     Active Substance: PERTUZUMAB
     Dosage: CYCLIC 4
  25. PERTUZUMAB [Suspect]
     Active Substance: PERTUZUMAB
     Dosage: CYCLIC 6
  26. PERTUZUMAB [Suspect]
     Active Substance: PERTUZUMAB
     Dosage: CYCLIC 7
  27. ADO-TRASTUZUMAB EMTANSINE [Suspect]
     Active Substance: ADO-TRASTUZUMAB EMTANSINE
     Indication: HER2 positive breast cancer
     Dosage: 3.6 MG/KG BODY WEIGHT EVERY 3 WEEKS, 302 MG

REACTIONS (5)
  - COVID-19 [Unknown]
  - Hypertensive crisis [Unknown]
  - Acute kidney injury [Unknown]
  - Proteinuria [Unknown]
  - Albuminuria [Unknown]
